FAERS Safety Report 11175771 (Version 2)
Quarter: 2015Q4

REPORT INFORMATION
  Report Type: Report from Study
  Country: US (occurrence: US)
  Receive Date: 20150609
  Receipt Date: 20151217
  Transmission Date: 20160304
  Serious: Yes (Hospitalization)
  Sender: FDA-Public Use
  Company Number: US-CELGENEUS-163-20785-11114007

PATIENT
  Age: 61 Year
  Sex: Male
  Weight: 102.6 kg

DRUGS (5)
  1. THALOMID [Suspect]
     Active Substance: THALIDOMIDE
     Route: 048
     Dates: start: 20120224, end: 20120302
  2. DECADRON [Suspect]
     Active Substance: DEXAMETHASONE
     Route: 065
     Dates: start: 20110921, end: 20121210
  3. THALOMID [Suspect]
     Active Substance: THALIDOMIDE
     Indication: PLASMA CELL MYELOMA
     Route: 048
     Dates: start: 201109
  4. THALOMID [Suspect]
     Active Substance: THALIDOMIDE
     Route: 048
     Dates: start: 20110921, end: 20111116
  5. DECADRON [Suspect]
     Active Substance: DEXAMETHASONE
     Indication: PLASMA CELL MYELOMA
     Dosage: 10 PILLS DAILY FOR 7 DAYS FOR X10 WEEKS
     Route: 065
     Dates: start: 20110921, end: 20111116

REACTIONS (5)
  - Chronic obstructive pulmonary disease [Recovered/Resolved]
  - Hypoxia [Recovered/Resolved]
  - Renal failure [Recovered/Resolved]
  - Pneumonia [Recovered/Resolved]
  - Dyspnoea [Recovered/Resolved]

NARRATIVE: CASE EVENT DATE: 20111114
